FAERS Safety Report 6757613-1 (Version None)
Quarter: 2010Q2

REPORT INFORMATION
  Report Type: 
  Country: None (occurrence: None)
  Receive Date: 20100607
  Receipt Date: 20100528
  Transmission Date: 20101027
  Serious: Yes (Death, Other)
  Sender: FDA-Public Use
  Company Number: JP-JNJFOC-20100601510

PATIENT
  Sex: Male

DRUGS (13)
  1. CRAVIT [Suspect]
     Indication: INFECTION PROPHYLAXIS
     Route: 048
  2. AMARYL [Suspect]
     Indication: DIABETES MELLITUS
     Route: 048
  3. BIOFERMIN R [Concomitant]
     Indication: PROPHYLAXIS AGAINST DIARRHOEA
     Route: 048
  4. LASIX [Concomitant]
     Indication: CARDIAC FAILURE
  5. LASIX [Concomitant]
     Indication: HYPERTENSION
  6. TOLTERODINE TARTRATE [Concomitant]
     Indication: DYSURIA
     Route: 048
  7. HARNAL [Concomitant]
     Indication: DYSURIA
     Route: 048
  8. GOODMIN [Concomitant]
     Indication: INSOMNIA
     Route: 048
  9. SENNOSIDE A+B [Concomitant]
     Indication: CONSTIPATION
     Route: 048
  10. WARFARIN SODIUM [Concomitant]
     Indication: ATRIAL FIBRILLATION
     Route: 048
  11. SEVOFRANE [Concomitant]
     Indication: ANAESTHESIA PROCEDURE
     Route: 055
  12. LAUGHING GAS [Concomitant]
     Indication: ANAESTHESIA PROCEDURE
     Route: 055
  13. PROPOFOL [Concomitant]
     Indication: ANAESTHESIA PROCEDURE
     Route: 041

REACTIONS (3)
  - COMA [None]
  - DEPRESSED LEVEL OF CONSCIOUSNESS [None]
  - HYPOGLYCAEMIA [None]
